FAERS Safety Report 18822130 (Version 2)
Quarter: 2021Q1

REPORT INFORMATION
  Report Type: Spontaneous
  Country: CN (occurrence: CN)
  Receive Date: 20210202
  Receipt Date: 20210308
  Transmission Date: 20210419
  Serious: Yes (Hospitalization, Other)
  Sender: FDA-Public Use
  Company Number: CN-GLAXOSMITHKLINE-CNCH2021APC001504

PATIENT
  Age: 85 Year
  Sex: Male

DRUGS (3)
  1. FENBID (IBUPROFEN) [Suspect]
     Active Substance: IBUPROFEN
     Indication: SWELLING
  2. ENTERIC?COATED ASPIRIN TABLETS [Suspect]
     Active Substance: ASPIRIN
     Indication: PLATELET AGGREGATION INHIBITION
     Dosage: 100 MG, QD
     Route: 048
     Dates: start: 20181210, end: 20201107
  3. FENBID (IBUPROFEN) [Suspect]
     Active Substance: IBUPROFEN
     Indication: PAIN
     Dosage: 1 DF, BID
     Route: 048
     Dates: start: 20201029, end: 20201107

REACTIONS (8)
  - Gastric disorder [Recovering/Resolving]
  - Haematemesis [Recovering/Resolving]
  - Upper gastrointestinal haemorrhage [Recovering/Resolving]
  - Dieulafoy^s vascular malformation [Recovering/Resolving]
  - Hyperhidrosis [Recovering/Resolving]
  - Condition aggravated [Recovering/Resolving]
  - Chronic gastritis [Recovering/Resolving]
  - Diverticulum intestinal [Recovering/Resolving]

NARRATIVE: CASE EVENT DATE: 20201107
